FAERS Safety Report 8917837 (Version 2)
Quarter: 2012Q4

REPORT INFORMATION
  Report Type: Report from Study
  Country: JP (occurrence: JP)
  Receive Date: 20121120
  Receipt Date: 20121129
  Transmission Date: 20130627
  Serious: Yes (Death)
  Sender: FDA-Public Use
  Company Number: JP-PFIZER INC-2012286072

PATIENT
  Age: 62 Year
  Sex: Male

DRUGS (2)
  1. TEMSIROLIMUS [Suspect]
     Indication: METASTATIC RENAL CELL CARCINOMA
     Dosage: 25 mg, weekly
     Route: 042
     Dates: start: 20110309
  2. POLARAMINE [Concomitant]
     Indication: PROPHYLAXIS
     Dosage: 5 mg, weekly on the days of temsirolimus administration
     Route: 042
     Dates: start: 20110309

REACTIONS (2)
  - Disease progression [Fatal]
  - Renal cell carcinoma [Fatal]
